FAERS Safety Report 5035514-7 (Version None)
Quarter: 2006Q2

REPORT INFORMATION
  Report Type: 
  Country: None (occurrence: None)
  Receive Date: 20060526
  Receipt Date: 20060213
  Transmission Date: 20061013
  Serious: No
  Sender: FDA-Public Use
  Company Number: 222075

PATIENT
  Age: 36 Year
  Sex: Female

DRUGS (5)
  1. RAPTIVA [Suspect]
     Indication: PSORIASIS
     Dosage: 1.4 ML, 1/WEEK, SUBCUTANEOUS
     Route: 058
     Dates: start: 20050807
  2. ACETAMINOPHEN [Concomitant]
  3. ADVIL [Concomitant]
  4. GLUCOPHAGE [Concomitant]
  5. METFORMIN (METFORMIN) [Concomitant]

REACTIONS (1)
  - ERYTHEMA [None]
